FAERS Safety Report 5693559-8 (Version None)
Quarter: 2008Q2

REPORT INFORMATION
  Report Type: 
  Country: None (occurrence: None)
  Receive Date: 20080402
  Receipt Date: 20080402
  Transmission Date: 20081010
  Serious: Yes (Other)
  Sender: FDA-Public Use
  Company Number: None

PATIENT
  Age: 76 Year
  Sex: Female
  Weight: 76.2043 kg

DRUGS (1)
  1. NITROFURANEN 100 MG WATSON [Suspect]
     Indication: RENAL DISORDER
     Dosage: 100 MG 1 - 2XS A DAY PO
     Route: 048
     Dates: start: 20070413, end: 20070413

REACTIONS (2)
  - MUSCULOSKELETAL STIFFNESS [None]
  - PARALYSIS [None]
